FAERS Safety Report 5080211-5 (Version None)
Quarter: 2006Q3

REPORT INFORMATION
  Report Type: 
  Country: None (occurrence: None)
  Receive Date: 20060810
  Receipt Date: 20060731
  Transmission Date: 20061208
  Serious: Yes (Hospitalization)
  Sender: FDA-Public Use
  Company Number: 226647

PATIENT
  Age: 45 Year
  Sex: Male
  Weight: 87.5 kg

DRUGS (6)
  1. NUTROPIN AQ [Suspect]
     Indication: HYPOPITUITARISM
     Dosage: 0.6 MG, 7/WEEK, SUBCUTANEOUS
     Route: 058
     Dates: start: 20050714
  2. ACIPHEX [Concomitant]
  3. EFFEXOR [Concomitant]
  4. GEODON [Concomitant]
  5. ROZEREM [Concomitant]
  6. SEROQUEL [Concomitant]

REACTIONS (2)
  - CHOLELITHIASIS [None]
  - PANCREATITIS [None]
